FAERS Safety Report 5427359-0 (Version None)
Quarter: 2007Q3

REPORT INFORMATION
  Report Type: 
  Country: None (occurrence: None)
  Receive Date: 20070828
  Receipt Date: 20070821
  Transmission Date: 20080115
  Serious: Yes (Hospitalization)
  Sender: FDA-Public Use
  Company Number: FR-AVENTIS-200712687FR

PATIENT
  Age: 57 Year
  Sex: Male

DRUGS (1)
  1. TELFAST                            /01314201/ [Suspect]
     Indication: RHINITIS ALLERGIC
     Route: 048
     Dates: start: 20070501, end: 20070701

REACTIONS (3)
  - ASTHENIA [None]
  - SERUM FERRITIN INCREASED [None]
  - TRANSAMINASES INCREASED [None]
